FAERS Safety Report 7153095-9 (Version None)
Quarter: 2010Q4

REPORT INFORMATION
  Report Type: 
  Country: None (occurrence: None)
  Receive Date: 20101213
  Receipt Date: 20101129
  Transmission Date: 20110411
  Serious: Yes (Other)
  Sender: FDA-Public Use
  Company Number: PHHY2010MX81107

PATIENT
  Sex: Male

DRUGS (1)
  1. EXFORGE HCT [Suspect]
     Dosage: 1 TABLET (320/10/25 MG) PER DAY
     Route: 048

REACTIONS (5)
  - ASTHENIA [None]
  - CATHETERISATION CARDIAC [None]
  - NASOPHARYNGITIS [None]
  - NAUSEA [None]
  - PERIPHERAL COLDNESS [None]
